FAERS Safety Report 13486649 (Version 3)
Quarter: 2017Q4

REPORT INFORMATION
  Report Type: Spontaneous
  Country: US (occurrence: US)
  Receive Date: 20170426
  Receipt Date: 20171116
  Transmission Date: 20180320
  Serious: Yes (Hospitalization, Other)
  Sender: FDA-Public Use
  Company Number: US-PFIZER INC-2017099321

PATIENT
  Age: 32 Year
  Sex: Male
  Weight: 71 kg

DRUGS (2)
  1. XYNTHA [Suspect]
     Active Substance: ANTIHEMOPHILIC FACTOR, HUMAN RECOMBINANT RESIDUES 743-1636 DELETED
     Dosage: 2010 IU, UNK (3 DAYS A WEEK, MONDAY, WEDNESDAY, FRIDAY)
  2. XYNTHA [Suspect]
     Active Substance: ANTIHEMOPHILIC FACTOR, HUMAN RECOMBINANT RESIDUES 743-1636 DELETED
     Indication: FACTOR VIII DEFICIENCY
     Dosage: 2000 IU, ALTERNATE DAY [IV INJECTION EVERY OTHER DAY; THREE TIMES A WEEK]
     Route: 042

REACTIONS (9)
  - Feeling cold [Unknown]
  - Fall [Unknown]
  - Gait disturbance [Not Recovered/Not Resolved]
  - Intervertebral disc protrusion [Unknown]
  - Product storage error [Unknown]
  - Muscle spasms [Recovering/Resolving]
  - Back disorder [Unknown]
  - Pain [Unknown]
  - Contusion [Unknown]

NARRATIVE: CASE EVENT DATE: 20170418
